FAERS Safety Report 23383091 (Version 1)
Quarter: 2024Q1

REPORT INFORMATION
  Report Type: Spontaneous
  Country: US (occurrence: None)
  Receive Date: 20240108
  Receipt Date: 20240108
  Transmission Date: 20240410
  Serious: Yes (Hospitalization, Disabling)
  Sender: FDA-Public Use
  Company Number: None

PATIENT
  Age: 58 Year
  Sex: Male
  Weight: 96.75 kg

DRUGS (7)
  1. MONTELUKAST [Suspect]
     Active Substance: MONTELUKAST SODIUM
     Indication: Asthma
     Dates: start: 20230201, end: 20230925
  2. SYMBICORT [Concomitant]
     Active Substance: BUDESONIDE\FORMOTEROL FUMARATE DIHYDRATE
  3. ALBUTEROL [Concomitant]
     Active Substance: ALBUTEROL
  4. VITAMIN D NOS [Concomitant]
     Active Substance: VITAMIN D NOS
  5. FISH OIL [Concomitant]
     Active Substance: FISH OIL
  6. MULTI [Concomitant]
  7. PROBIOTICS NOS [Concomitant]
     Active Substance: PROBIOTICS NOS

REACTIONS (9)
  - Panic attack [None]
  - Therapy interrupted [None]
  - Impaired work ability [None]
  - Agitation [None]
  - Insomnia [None]
  - Suicidal ideation [None]
  - Crying [None]
  - Anxiety [None]
  - Depression [None]

NARRATIVE: CASE EVENT DATE: 20230915
